FAERS Safety Report 26168110 (Version 1)
Quarter: 2025Q4

REPORT INFORMATION
  Report Type: Spontaneous
  Country: US (occurrence: US)
  Receive Date: 20251217
  Receipt Date: 20251217
  Transmission Date: 20260117
  Serious: No
  Sender: TOLMAR
  Company Number: US-Tolmar-TLM-2025-09386

PATIENT

DRUGS (2)
  1. ELIGARD [Suspect]
     Active Substance: LEUPROLIDE ACETATE
     Indication: Prostate cancer
     Dosage: LOT NUMBER: 15498CUS EXP: 04/2027?GTIN: 00362935227106?SN: 3864977429058?NDC: 62935-227-10?SYRINGE A
  2. DEVICE [Suspect]
     Active Substance: DEVICE
     Indication: Prostate cancer
     Dosage: LOT NUMBER: 15498CUS EXP: 04/2027?GTIN: 00362935227106?SN: 3864977429058?NDC: 62935-227-10?SYRINGE A

REACTIONS (3)
  - Intercepted product preparation error [Unknown]
  - Device leakage [Unknown]
  - Device breakage [Unknown]
